FAERS Safety Report 10522611 (Version 1)
Quarter: 2014Q4

REPORT INFORMATION
  Report Type: Spontaneous
  Country: US (occurrence: None)
  Receive Date: 20141010
  Receipt Date: 20141010
  Transmission Date: 20150528
  Serious: Yes (Other)
  Sender: FDA-Public Use
  Company Number: 2014-19673

PATIENT
  Age: 82 Year
  Sex: Female

DRUGS (8)
  1. MICARDIS [Concomitant]
     Active Substance: TELMISARTAN
  2. PROTONIX [Concomitant]
     Active Substance: PANTOPRAZOLE SODIUM
  3. FISH OIL (FISH OIL) [Concomitant]
     Active Substance: FISH OIL
  4. RESTASIS (CICLOSPORIN) [Concomitant]
  5. PRAVASTATIN [Concomitant]
     Active Substance: PRAVASTATIN\PRAVASTATIN SODIUM
  6. ICAPS (MINERALS NOS, VITAMINS NOS) [Concomitant]
  7. EYLEA [Suspect]
     Active Substance: AFLIBERCEPT
     Indication: AGE-RELATED MACULAR DEGENERATION
     Route: 031
     Dates: start: 20140515, end: 20140515
  8. MULTIVITAMIN (ASCORBIC ACID, CALCIUM PANTOTHENATE, ERGOCALCIFEROL, NICOTINAMIDE, PYRIDOXINE HYDROCHLORIDE, RETINOL, RIBOFLAVIN, THIAMINE HYDROCHLORIDE [Concomitant]

REACTIONS (5)
  - Endophthalmitis [None]
  - Intraocular pressure increased [None]
  - Blindness transient [None]
  - Eye infection staphylococcal [None]
  - Visual acuity reduced [None]

NARRATIVE: CASE EVENT DATE: 20140226
